FAERS Safety Report 7402281-9 (Version None)
Quarter: 2011Q2

REPORT INFORMATION
  Report Type: 
  Country: None (occurrence: None)
  Receive Date: 20110408
  Receipt Date: 20110329
  Transmission Date: 20111010
  Serious: Yes (Disabling, Other)
  Sender: FDA-Public Use
  Company Number: US-NOVOPROD-325818

PATIENT
  Age: 60 Year
  Sex: Male
  Weight: 136.5 kg

DRUGS (1)
  1. NOVOLOG [Suspect]
     Indication: TYPE 2 DIABETES MELLITUS
     Dosage: 30 U QAM, 30 U QPM
     Route: 058
     Dates: start: 20040101

REACTIONS (1)
  - DIABETIC RETINOPATHY [None]
